FAERS Safety Report 25113622 (Version 1)
Quarter: 2025Q1

REPORT INFORMATION
  Report Type: Spontaneous
  Country: US (occurrence: US)
  Receive Date: 20250324
  Receipt Date: 20250324
  Transmission Date: 20250409
  Serious: No
  Sender: MERCK SHARP & DOHME LLC
  Company Number: US-009507513-2265753

PATIENT
  Age: 65 Year
  Sex: Male

DRUGS (1)
  1. KEYTRUDA [Suspect]
     Active Substance: PEMBROLIZUMAB
     Route: 050
     Dates: start: 202501, end: 202501

REACTIONS (2)
  - Rash vesicular [Not Recovered/Not Resolved]
  - Vascular access complication [Unknown]

NARRATIVE: CASE EVENT DATE: 20250101
